FAERS Safety Report 9349349 (Version 1)
Quarter: 2013Q2

REPORT INFORMATION
  Report Type: Spontaneous
  Country: KR (occurrence: KR)
  Receive Date: 20130614
  Receipt Date: 20130614
  Transmission Date: 20140414
  Serious: Yes (Death)
  Sender: FDA-Public Use
  Company Number: KR-ACTELION-A-CH2013-84204

PATIENT
  Age: 32 Year
  Sex: Female
  Weight: 55 kg

DRUGS (3)
  1. TRACLEER [Suspect]
     Indication: PULMONARY ARTERIAL HYPERTENSION
     Dosage: 62.5 MG, BID
     Route: 048
     Dates: start: 20091216
  2. BIPHENYL DICARBOXYLATE [Concomitant]
     Dosage: UNK
     Dates: start: 20111219
  3. XYZAL [Concomitant]
     Dosage: UNK
     Dates: start: 20111219

REACTIONS (1)
  - Cerebral haemorrhage [Fatal]
